FAERS Safety Report 6290810-0 (Version None)
Quarter: 2009Q3

REPORT INFORMATION
  Report Type: 
  Country: None (occurrence: None)
  Receive Date: 20090730
  Receipt Date: 20090720
  Transmission Date: 20100115
  Serious: Yes (Other)
  Sender: FDA-Public Use
  Company Number: IT-AMGEN-UK356457

PATIENT
  Sex: Female
  Weight: 98 kg

DRUGS (1)
  1. VECTIBIX [Suspect]
     Indication: COLORECTAL CANCER
     Route: 042
     Dates: start: 20080516, end: 20081016

REACTIONS (5)
  - DIARRHOEA [None]
  - FOLLICULITIS [None]
  - PYREXIA [None]
  - SKIN FISSURES [None]
  - STOMATITIS [None]
